FAERS Safety Report 8422776-9 (Version None)
Quarter: 2012Q2

REPORT INFORMATION
  Report Type: 
  Country: None (occurrence: None)
  Receive Date: 20120608
  Receipt Date: 20120530
  Transmission Date: 20120825
  Serious: Yes (Hospitalization)
  Sender: FDA-Public Use
  Company Number: US-MERCK-1204USA00038

PATIENT
  Age: 63 Year
  Sex: Male

DRUGS (6)
  1. FOSAMAX [Suspect]
     Route: 048
     Dates: start: 20080801, end: 20100206
  2. PROVENTIL GENTLEHALER [Concomitant]
     Route: 055
     Dates: start: 20060801, end: 20110901
  3. HYDROCODONE BITARTRATE AND ACETAMINOPHEN [Concomitant]
     Route: 065
     Dates: start: 20040401, end: 20110801
  4. FOSAMAX [Suspect]
     Indication: OSTEOPOROSIS
     Route: 048
     Dates: start: 20040131, end: 20080405
  5. CORTICOSTEROIDS (UNSPECIFIED) [Concomitant]
     Route: 065
     Dates: start: 19970101
  6. VITAMINS (UNSPECIFIED) [Concomitant]
     Route: 065

REACTIONS (4)
  - FRACTURE NONUNION [None]
  - BLOOD PRESSURE INCREASED [None]
  - DEVICE FAILURE [None]
  - FEMUR FRACTURE [None]
